FAERS Safety Report 8761026 (Version 1)
Quarter: 2012Q4

REPORT INFORMATION
  Report Type: 
  Country: IT (occurrence: IT)
  Receive Date: 20120830
  Receipt Date: 20120830
  Transmission Date: 20130627
  Serious: Yes (Hospitalization, Other)
  Sender: FDA-Public Use
  Company Number: IT-ROXANE LABORATORIES, INC.-2012-RO-01757RO

PATIENT
  Age: 65 Year
  Sex: Female

DRUGS (3)
  1. AZATHIOPRINE [Suspect]
     Indication: RHEUMATOID ARTHRITIS
  2. METHYLPREDNISOLONE [Suspect]
     Indication: RHEUMATOID ARTHRITIS
     Dosage: 4 mg
  3. BONVIVA [Suspect]
     Indication: PROPHYLAXIS
     Route: 048

REACTIONS (7)
  - Osteonecrosis of jaw [Unknown]
  - Osteomyelitis [Unknown]
  - Osteopenia [Unknown]
  - Hypocalcaemia [Unknown]
  - Hypocalciuria [Unknown]
  - Vitamin D deficiency [Unknown]
  - Hyperparathyroidism secondary [Unknown]
